FAERS Safety Report 11957838 (Version 2)
Quarter: 2016Q1

REPORT INFORMATION
  Report Type: Report from Study
  Country: US (occurrence: US)
  Receive Date: 20160126
  Receipt Date: 20160212
  Transmission Date: 20160526
  Serious: Yes (Hospitalization)
  Sender: FDA-Public Use
  Company Number: US-BIOGEN-2015BI149852

PATIENT
  Age: 62 Year
  Sex: Female

DRUGS (2)
  1. TYSABRI [Suspect]
     Active Substance: NATALIZUMAB
     Indication: MULTIPLE SCLEROSIS
     Route: 042
     Dates: start: 20150430, end: 20150731
  2. TYSABRI [Suspect]
     Active Substance: NATALIZUMAB
     Route: 042

REACTIONS (8)
  - Dysphagia [Unknown]
  - Hypoxic-ischaemic encephalopathy [Unknown]
  - Mental status changes [Unknown]
  - Respiratory disorder [Unknown]
  - Multiple sclerosis relapse [Recovered/Resolved]
  - Systemic inflammatory response syndrome [Unknown]
  - Respiratory distress [Unknown]
  - Pneumonia [Unknown]

NARRATIVE: CASE EVENT DATE: 201511
